FAERS Safety Report 9227640 (Version 1)
Quarter: 2013Q2

REPORT INFORMATION
  Report Type: Spontaneous
  Country: US (occurrence: US)
  Receive Date: 20130412
  Receipt Date: 20130412
  Transmission Date: 20140414
  Serious: Yes (Death, Other)
  Sender: FDA-Public Use
  Company Number: US-ELI_LILLY_AND_COMPANY-US201304003421

PATIENT
  Sex: Female

DRUGS (1)
  1. ALIMTA [Suspect]
     Dosage: UNK
     Dates: start: 20110927

REACTIONS (2)
  - Death [Fatal]
  - Malignant neoplasm progression [Unknown]
